FAERS Safety Report 4316358-8 (Version None)
Quarter: 2004Q1

REPORT INFORMATION
  Report Type: 
  Country: None (occurrence: None)
  Receive Date: 20040311
  Receipt Date: 20040225
  Transmission Date: 20041129
  Serious: Yes (Hospitalization)
  Sender: FDA-Public Use
  Company Number: LBID00204000603

PATIENT
  Sex: Female

DRUGS (1)
  1. LITHIUM (MANUFACTURER UNKNOWN) (LITHIUM) [Suspect]
     Indication: BIPOLAR I DISORDER
     Dosage: 1050 MG DAILY PO
     Route: 048

REACTIONS (10)
  - AGITATION [None]
  - ANXIETY [None]
  - BLOOD CREATININE INCREASED [None]
  - GASTROINTESTINAL NECROSIS [None]
  - HYPOMANIA [None]
  - HYPONATRAEMIA [None]
  - NEPHROGENIC DIABETES INSIPIDUS [None]
  - POST PROCEDURAL COMPLICATION [None]
  - SLEEP DISORDER [None]
  - TOXIC DILATATION OF COLON [None]
